FAERS Safety Report 22107730 (Version 1)
Quarter: 2023Q1

REPORT INFORMATION
  Report Type: Spontaneous
  Country: US (occurrence: US)
  Receive Date: 20230317
  Receipt Date: 20230317
  Transmission Date: 20230417
  Serious: Yes (Hospitalization)
  Sender: FDA-Public Use
  Company Number: US-BAXTER-2023BAX015426

PATIENT
  Sex: Female

DRUGS (4)
  1. FUROSEMIDE [Suspect]
     Active Substance: FUROSEMIDE
     Indication: Fluid retention
     Dosage: AT AN UNSPECIFIED DOSE AND FREQUENCY, INJECTION
     Route: 042
  2. FUROSEMIDE [Suspect]
     Active Substance: FUROSEMIDE
     Indication: Fluid retention
     Dosage: AT AN UNSPECIFIED DOSE AND FREQUENCY, STRENGTH: 40 MG
     Route: 065
  3. FUROSEMIDE [Suspect]
     Active Substance: FUROSEMIDE
     Indication: Fluid retention
     Dosage: AT AN UNSPECIFIED DOSE AND FREQUENCY, STRENGTH: 20 MG
     Route: 065
  4. FUROSEMIDE [Suspect]
     Active Substance: FUROSEMIDE
     Indication: Fluid retention
     Dosage: AT AN UNSPECIFIED DOSE AND FREQUENCY, STRENGTH: 80 MG
     Route: 065

REACTIONS (2)
  - Deformity [Not Recovered/Not Resolved]
  - General physical condition abnormal [Not Recovered/Not Resolved]
